FAERS Safety Report 6894278-2 (Version None)
Quarter: 2010Q3

REPORT INFORMATION
  Report Type: 
  Country: None (occurrence: None)
  Receive Date: 20100728
  Receipt Date: 20100721
  Transmission Date: 20110219
  Serious: Yes (Disabling, Other)
  Sender: FDA-Public Use
  Company Number: OSCN-NO-1005S-0133

PATIENT
  Age: 66 Year
  Sex: Male

DRUGS (2)
  1. OMNISCAN [Suspect]
     Indication: RENAL TRANSPLANT
     Dosage: 20 ML, SINGLE DOSE, I.V.
     Route: 042
     Dates: start: 20050308, end: 20050308
  2. PREDNISOLONE [Concomitant]

REACTIONS (9)
  - ARTHRALGIA [None]
  - HYPOAESTHESIA [None]
  - JOINT STIFFNESS [None]
  - JOINT SWELLING [None]
  - LIMB DISCOMFORT [None]
  - MUSCULOSKELETAL STIFFNESS [None]
  - PAIN IN EXTREMITY [None]
  - PARAESTHESIA [None]
  - SENSORY DISTURBANCE [None]
